FAERS Safety Report 4722206-4 (Version None)
Quarter: 2005Q3

REPORT INFORMATION
  Report Type: 
  Country: None (occurrence: None)
  Receive Date: 20050722
  Receipt Date: 20040830
  Transmission Date: 20060218
  Serious: Yes (Hospitalization)
  Sender: FDA-Public Use
  Company Number: US-GLAXOSMITHKLINE-A0524351A

PATIENT
  Sex: Female
  Weight: 181.8 kg

DRUGS (12)
  1. AVANDIA [Suspect]
     Route: 048
     Dates: start: 20010606, end: 20030101
  2. ALBUTEROL [Concomitant]
     Route: 055
  3. COMBIVENT [Concomitant]
     Route: 055
  4. LASIX [Concomitant]
  5. EFFEXOR [Concomitant]
  6. RISPERDAL [Concomitant]
  7. ENALAPRIL [Concomitant]
  8. POTASSIUM CHLORIDE [Concomitant]
  9. CHLORPROPAMIDE [Concomitant]
  10. CELEBREX [Concomitant]
  11. INSULIN [Concomitant]
  12. DIABETA [Concomitant]

REACTIONS (1)
  - CARDIAC FAILURE CONGESTIVE [None]
